FAERS Safety Report 7272067-7 (Version None)
Quarter: 2011Q1

REPORT INFORMATION
  Report Type: 
  Country: None (occurrence: None)
  Receive Date: 20110203
  Receipt Date: 20100309
  Transmission Date: 20110831
  Serious: Yes (Hospitalization, Other)
  Sender: FDA-Public Use
  Company Number: US-AMGEN-QUU393217

PATIENT
  Age: 43 Year
  Sex: Female
  Weight: 100 kg

DRUGS (16)
  1. RIZATRIPTAN BENZOATE [Concomitant]
     Dosage: 10 MG, UNK
     Dates: start: 20090624, end: 20100104
  2. CARVEDILOL [Concomitant]
     Dosage: 12.5 MG, UNK
     Dates: start: 20100104
  3. PROMETHAZINE W/ CODEINE [Concomitant]
     Dosage: UNK UNK, UNK
     Dates: start: 20091027, end: 20091214
  4. RITUXIMAB [Concomitant]
     Dosage: 375 MG/M2, UNK
     Dates: start: 20090204
  5. NPLATE [Suspect]
     Indication: IDIOPATHIC THROMBOCYTOPENIC PURPURA
     Dosage: 1 A?G/KG, QWK
     Route: 058
     Dates: start: 20090116, end: 20091217
  6. ALBUTEROL SULFATE [Concomitant]
     Dosage: UNK UNK, UNK
     Dates: start: 20091102, end: 20091220
  7. SIMVASTATIN [Concomitant]
     Dosage: 5 MG, UNK
     Dates: start: 20091107, end: 20091216
  8. AZITHROMYCIN [Concomitant]
  9. METOPROLOL TARTRATE [Concomitant]
     Dosage: 25 MG, UNK
     Dates: start: 20091107, end: 20100104
  10. CYCLOPHOSPHAMIDE [Concomitant]
     Dosage: UNK UNK, UNK
     Dates: start: 20090204
  11. UNSPECIFIED MEDICATION [Concomitant]
     Dosage: 10 MG, UNK
     Dates: start: 20091216, end: 20100104
  12. PREDNISONE [Concomitant]
     Dosage: UNK UNK, UNK
     Dates: start: 20081113
  13. PANTOPRAZOLE [Concomitant]
     Dosage: 40 MG, UNK
     Dates: start: 20091107
  14. RANITIDINE HYDROCHLORIDE [Concomitant]
  15. CLOPIDOGREL [Concomitant]
     Dosage: 75 MG, UNK
     Dates: start: 20091107, end: 20091216
  16. ASPIRIN [Concomitant]
     Dosage: 325 MG, UNK
     Dates: start: 20091107

REACTIONS (23)
  - CARDIAC FAILURE CONGESTIVE [None]
  - PAIN IN EXTREMITY [None]
  - HYPERHIDROSIS [None]
  - HYPOTENSION [None]
  - MOUTH HAEMORRHAGE [None]
  - ADVERSE DRUG REACTION [None]
  - FLUID OVERLOAD [None]
  - THROMBOCYTOPENIA [None]
  - DYSPNOEA PAROXYSMAL NOCTURNAL [None]
  - DEEP VEIN THROMBOSIS [None]
  - TRICUSPID VALVE INCOMPETENCE [None]
  - CORONARY ARTERY THROMBOSIS [None]
  - ACUTE MYOCARDIAL INFARCTION [None]
  - THROMBOSIS IN DEVICE [None]
  - NAUSEA [None]
  - EPISTAXIS [None]
  - RECTAL HAEMORRHAGE [None]
  - BACK PAIN [None]
  - ACUTE CORONARY SYNDROME [None]
  - BLOOD PRESSURE INCREASED [None]
  - HYPERTENSION [None]
  - HYPERCOAGULATION [None]
  - MITRAL VALVE INCOMPETENCE [None]
